FAERS Safety Report 5835928-9 (Version None)
Quarter: 2008Q3

REPORT INFORMATION
  Report Type: 
  Country: None (occurrence: None)
  Receive Date: 20080806
  Receipt Date: 20080729
  Transmission Date: 20090109
  Serious: Yes (Hospitalization)
  Sender: FDA-Public Use
  Company Number: FR-PFIZER INC-2008063742

PATIENT
  Sex: Female

DRUGS (3)
  1. SOLU-MEDROL [Suspect]
     Route: 042
     Dates: start: 20080609, end: 20080101
  2. ENOXAPARIN SODIUM [Concomitant]
     Route: 058
  3. OMEPRAZOLE [Concomitant]
     Route: 048

REACTIONS (3)
  - CHEST PAIN [None]
  - HEADACHE [None]
  - PALPITATIONS [None]
